FAERS Safety Report 22250472 (Version 3)
Quarter: 2023Q2

REPORT INFORMATION
  Report Type: Spontaneous
  Country: US (occurrence: US)
  Receive Date: 20230425
  Receipt Date: 20230626
  Transmission Date: 20230721
  Serious: No
  Sender: FDA-Public Use
  Company Number: None

PATIENT
  Age: 75 Year
  Sex: Female
  Weight: 160 kg

DRUGS (5)
  1. METFORMIN HYDROCHLORIDE [Suspect]
     Active Substance: METFORMIN HYDROCHLORIDE
     Indication: Diabetes mellitus
     Route: 048
     Dates: start: 20230111
  2. METFORMIN HYDROCHLORIDE [Suspect]
     Active Substance: METFORMIN HYDROCHLORIDE
     Indication: Diabetes mellitus
     Route: 048
     Dates: start: 20230112
  3. METFORMIN HYDROCHLORIDE [Suspect]
     Active Substance: METFORMIN HYDROCHLORIDE
     Route: 048
  4. REPATHA [Concomitant]
     Active Substance: EVOLOCUMAB
     Indication: Blood cholesterol
     Route: 065
  5. PROBENECID [Concomitant]
     Active Substance: PROBENECID
     Indication: Gout
     Route: 065

REACTIONS (5)
  - Cough [Unknown]
  - Eye pruritus [Not Recovered/Not Resolved]
  - Rhinorrhoea [Not Recovered/Not Resolved]
  - Diarrhoea [Not Recovered/Not Resolved]
  - Abdominal discomfort [Not Recovered/Not Resolved]
